FAERS Safety Report 6079043-0 (Version None)
Quarter: 2009Q1

REPORT INFORMATION
  Report Type: 
  Country: None (occurrence: None)
  Receive Date: 20090216
  Receipt Date: 20090203
  Transmission Date: 20090719
  Serious: No
  Sender: FDA-Public Use
  Company Number: BR-ROCHE-586453

PATIENT
  Sex: Male
  Weight: 3.2 kg

DRUGS (2)
  1. ROACUTAN [Suspect]
     Indication: ACNE
     Route: 064
     Dates: start: 20071001
  2. ROACUTAN [Suspect]
     Route: 064
     Dates: start: 20071201

REACTIONS (2)
  - NO ADVERSE EVENT [None]
  - NORMAL NEWBORN [None]
